FAERS Safety Report 5501078-4 (Version None)
Quarter: 2007Q4

REPORT INFORMATION
  Report Type: 
  Country: None (occurrence: None)
  Receive Date: 20071029
  Receipt Date: 20071017
  Transmission Date: 20080405
  Serious: Yes (Hospitalization)
  Sender: FDA-Public Use
  Company Number: CH-PFIZER INC-2007086592

PATIENT
  Age: 27 Year
  Sex: Female

DRUGS (2)
  1. RELPAX [Suspect]
     Indication: MIGRAINE
     Dosage: TEXT:IF NEEDED
     Route: 048
     Dates: start: 20050101, end: 20071002
  2. DAFALGAN [Suspect]
     Indication: MIGRAINE
     Route: 048

REACTIONS (2)
  - ANGIOEDEMA [None]
  - TYPE I HYPERSENSITIVITY [None]
